FAERS Safety Report 22700189 (Version 2)
Quarter: 2024Q4

REPORT INFORMATION
  Report Type: Report from Study
  Country: MX (occurrence: MX)
  Receive Date: 20230713
  Receipt Date: 20241011
  Transmission Date: 20250114
  Serious: Yes (Life-Threatening)
  Sender: NOVARTIS
  Company Number: MX-002147023-NVSC2023MX155020

PATIENT
  Age: 43 Year
  Sex: Female
  Weight: 76 kg

DRUGS (6)
  1. COSENTYX [Suspect]
     Active Substance: SECUKINUMAB
     Indication: Psoriatic arthropathy
     Dosage: 2 DOSAGE FORM, 2 PENS EVERY WEEK FOR 5 WEEKS FOLLOWED BY MONTHLY (QMO)
     Route: 058
     Dates: start: 2022, end: 202404
  2. VITAMIN D3 [Concomitant]
     Active Substance: CHOLECALCIFEROL
     Indication: Product used for unknown indication
     Dosage: 1 DOSAGE FORM, QD (BY MOUTH) (ONE PEARL A DAY)
     Route: 048
  3. GAVINDO [Concomitant]
     Indication: Product used for unknown indication
     Dosage: 1 DOSAGE FORM, QD (BY MOUTH)
     Route: 048
  4. DIPROSPAN [Concomitant]
     Active Substance: BETAMETHASONE DIPROPIONATE\BETAMETHASONE SODIUM PHOSPHATE
     Indication: Product used for unknown indication
     Dosage: 1 DOSAGE FORM, ONCE/SINGLE (HYPAK)
     Route: 030
     Dates: start: 202003
  5. ROSUVASTATIN [Concomitant]
     Active Substance: ROSUVASTATIN
     Indication: Product used for unknown indication
     Dosage: 1 DOSAGE FORM, QD (BY MOUTH)
     Route: 048
  6. EZETIMIBE [Concomitant]
     Active Substance: EZETIMIBE
     Indication: Product used for unknown indication
     Dosage: 1 DOSAGE FORM, QD (BY MOUTH)
     Route: 048

REACTIONS (17)
  - Platelet count abnormal [Unknown]
  - White blood cell count abnormal [Unknown]
  - Arthralgia [Unknown]
  - Dermatosis [Unknown]
  - Pain in extremity [Unknown]
  - Blood thyroid stimulating hormone abnormal [Unknown]
  - Low density lipoprotein abnormal [Unknown]
  - Glycoprotein metabolism disorder [Unknown]
  - Hypertonic bladder [Recovering/Resolving]
  - Inflammation [Recovering/Resolving]
  - C-reactive protein increased [Recovering/Resolving]
  - Influenza [Unknown]
  - Hypertension [Unknown]
  - Tachycardia [Unknown]
  - Migraine [Recovering/Resolving]
  - Malaise [Recovering/Resolving]
  - Ill-defined disorder [Recovering/Resolving]

NARRATIVE: CASE EVENT DATE: 20230504
